FAERS Safety Report 7788071-6 (Version None)
Quarter: 2011Q3

REPORT INFORMATION
  Report Type: 
  Country: None (occurrence: None)
  Receive Date: 20110927
  Receipt Date: 20110912
  Transmission Date: 20111222
  Serious: Yes (Other)
  Sender: FDA-Public Use
  Company Number: DSJ-2011-20073

PATIENT
  Age: 67 Year
  Sex: Female

DRUGS (7)
  1. AMLODIPINE BESYLATE [Suspect]
     Indication: PRODUCT USED FOR UNKNOWN INDICATION
  2. LASIX [Suspect]
     Indication: PRODUCT USED FOR UNKNOWN INDICATION
  3. OLMESARTAN MEDOXOMIL [Suspect]
     Indication: PRODUCT USED FOR UNKNOWN INDICATION
  4. PREDNISOLONE [Suspect]
     Indication: PRODUCT USED FOR UNKNOWN INDICATION
  5. EDIROL (ELDECALCITOL) [Suspect]
     Indication: PRODUCT USED FOR UNKNOWN INDICATION
  6. DIFLUCAN (FLUCONAZOLE) (CAPSULE) (FLUCONAZOLE) [Concomitant]
  7. AZATHIOPRINE (AZATHIOPRINE)(AZATHIOPRINE) [Suspect]
     Indication: PRODUCT USED FOR UNKNOWN INDICATION

REACTIONS (2)
  - OESOPHAGEAL CANDIDIASIS [None]
  - HAEMOLYTIC ANAEMIA [None]
